FAERS Safety Report 6346723-9 (Version None)
Quarter: 2009Q3

REPORT INFORMATION
  Report Type: 
  Country: None (occurrence: None)
  Receive Date: 20090904
  Receipt Date: 20090806
  Transmission Date: 20100115
  Serious: Yes (Death, Hospitalization)
  Sender: FDA-Public Use
  Company Number: CLOF-1000571

PATIENT
  Age: 17 Year
  Sex: Female

DRUGS (16)
  1. EVOLTRA (CLOFARABINE) SOLUTION FOR INFUSION [Suspect]
     Indication: ACUTE LYMPHOCYTIC LEUKAEMIA
     Dosage: 40 MG/M2, QDX5
     Dates: start: 20090420, end: 20090424
  2. CYCLOPHOSPHAMIDE (CYCLOPHOSPHAMIDE) INTRAVENOUS INFUSION [Suspect]
     Indication: ACUTE LYMPHOCYTIC LEUKAEMIA
     Dosage: 440 MG/M2, QDX5
     Dates: start: 20090420, end: 20090424
  3. ETOPOSIDE (ETOPOSIDE PHOSPHATE) INTRAVENOUS INFUSION [Suspect]
     Indication: ACUTE LYMPHOCYTIC LEUKAEMIA
     Dosage: 100 MG/M2, QDX5
     Dates: start: 20090420, end: 20090424
  4. ONDANSETRON [Concomitant]
  5. CYCLIZINE (CYCLIZINE) [Concomitant]
  6. CASPOFUNGIN (CASPOFUNGIN ACETATE) [Concomitant]
  7. ACICLOVIR (ACICLOVIR SODIUM) [Concomitant]
  8. SULFAMETHOXAZOLE AND TRIMETHOPRIM [Concomitant]
  9. LANZOPRAZOL (LANSOPRAZOLE) [Concomitant]
  10. PHENYTOIN [Concomitant]
  11. CHLORPHENIRAMINE TAB [Concomitant]
  12. SALBUTAMOL (SALBUTAMOL SULFATE) [Concomitant]
  13. CETIRIZINE HCL [Concomitant]
  14. BISOPROLOL FUMARATE [Concomitant]
  15. PARACETAMOL (PROMETHAZINE HYDROCHLORIDE) [Concomitant]
  16. LEVOMEPROMAZINE (LEVOMEPROMAZINE) [Concomitant]

REACTIONS (5)
  - DYSPNOEA [None]
  - GENERAL PHYSICAL HEALTH DETERIORATION [None]
  - NEUTROPENIA [None]
  - PYREXIA [None]
  - RESPIRATORY FAILURE [None]
